FAERS Safety Report 22045593 (Version 1)
Quarter: 2023Q1

REPORT INFORMATION
  Report Type: Spontaneous
  Country: US (occurrence: None)
  Receive Date: 20230227
  Receipt Date: 20230227
  Transmission Date: 20230418
  Serious: Yes (Death)
  Sender: FDA-Public Use
  Company Number: None

PATIENT
  Age: 71 Year
  Sex: Male

DRUGS (1)
  1. PROLIA [Suspect]
     Active Substance: DENOSUMAB
     Indication: Osteoporosis
     Dosage: OTHER FREQUENCY : EVERY 6 MONTHS;?INJECT 60MG/ML UNDER THE SKIN (SUBCUTANEOUS INJECTION) ONCE EVERY
     Route: 058
     Dates: start: 20200528

REACTIONS (1)
  - Death [None]

NARRATIVE: CASE EVENT DATE: 20221130
